FAERS Safety Report 14413036 (Version 1)
Quarter: 2018Q1

REPORT INFORMATION
  Report Type: Spontaneous
  Country: FR (occurrence: FR)
  Receive Date: 20180119
  Receipt Date: 20180119
  Transmission Date: 20180509
  Serious: Yes (Other)
  Sender: FDA-Public Use
  Company Number: FR-MYLANLABS-2018M1003435

PATIENT
  Age: 20 Year
  Sex: Female

DRUGS (2)
  1. KETOPROFEN. [Suspect]
     Active Substance: KETOPROFEN
     Indication: ARTHRALGIA
     Dosage: UNK
     Route: 048
  2. DAFALGAN [Concomitant]
     Active Substance: ACETAMINOPHEN
     Indication: ARTHRALGIA
     Dosage: INCONNUE
     Route: 048

REACTIONS (2)
  - Condition aggravated [Recovering/Resolving]
  - Pilonidal cyst [Recovering/Resolving]

NARRATIVE: CASE EVENT DATE: 20170428
